FAERS Safety Report 4839446-6 (Version None)
Quarter: 2005Q4

REPORT INFORMATION
  Report Type: 
  Country: None (occurrence: None)
  Receive Date: 20051129
  Receipt Date: 20050201
  Transmission Date: 20060501
  Serious: Yes (Life-Threatening, Hospitalization, Disabling)
  Sender: FDA-Public Use
  Company Number: US-MERCK-0502USA00214

PATIENT
  Age: 45 Year
  Sex: Male
  Weight: 107 kg

DRUGS (4)
  1. ACCUPRIL [Concomitant]
     Route: 065
  2. ASPIRIN [Concomitant]
     Route: 065
  3. GLUCOPHAGE [Concomitant]
     Route: 065
  4. VIOXX [Suspect]
     Indication: BURSITIS
     Route: 048
     Dates: start: 20020211, end: 20040417

REACTIONS (4)
  - ANXIETY DISORDER [None]
  - COLONIC FISTULA [None]
  - DIABETES MELLITUS [None]
  - MYOCARDIAL INFARCTION [None]
